FAERS Safety Report 6335264-0 (Version None)
Quarter: 2009Q3

REPORT INFORMATION
  Report Type: 
  Country: None (occurrence: None)
  Receive Date: 20090831
  Receipt Date: 20090827
  Transmission Date: 20100115
  Serious: Yes (Other)
  Sender: FDA-Public Use
  Company Number: US-MERCK-0906USA03685

PATIENT
  Age: 12 Year
  Sex: Female
  Weight: 45 kg

DRUGS (6)
  1. SINGULAIR [Suspect]
     Indication: HYPERSENSITIVITY
     Route: 048
     Dates: start: 20081113, end: 20090207
  2. SINGULAIR [Suspect]
     Indication: ASTHMA
     Route: 048
     Dates: start: 20081113, end: 20090207
  3. CORTICOSTEROIDS (UNSPECIFIED) [Concomitant]
     Route: 065
  4. ALVESCO [Concomitant]
     Route: 048
  5. ZYRTEC [Concomitant]
     Route: 048
  6. NASONEX [Concomitant]

REACTIONS (4)
  - ABNORMAL BEHAVIOUR [None]
  - DEPRESSION [None]
  - SUICIDAL IDEATION [None]
  - SUICIDE ATTEMPT [None]
